FAERS Safety Report 5130906-X (Version None)
Quarter: 2006Q4

REPORT INFORMATION
  Report Type: 
  Country: None (occurrence: None)
  Receive Date: 20061017
  Receipt Date: 20061017
  Transmission Date: 20070319
  Serious: No
  Sender: FDA-Public Use
  Company Number: None

PATIENT
  Age: 59 Year
  Sex: Female
  Weight: 65.7716 kg

DRUGS (1)
  1. ZICAM NASAL SPRAY 15ML MATRIXX INITIATIVES [Suspect]
     Indication: NASOPHARYNGITIS
     Dates: start: 19991210, end: 20061010

REACTIONS (1)
  - HYPOSMIA [None]
